FAERS Safety Report 8092531-0 (Version None)
Quarter: 2012Q1

REPORT INFORMATION
  Report Type: 
  Country: None (occurrence: None)
  Receive Date: 20120130
  Receipt Date: 20120130
  Transmission Date: 20120608
  Serious: No
  Sender: FDA-Public Use
  Company Number: None

PATIENT
  Age: 65 Year
  Sex: Male
  Weight: 68.2 kg

DRUGS (1)
  1. CISPLATIN [Suspect]
     Indication: LARYNGEAL CANCER
     Dosage: 176 MG OTHER IV
     Route: 042
     Dates: start: 20110926, end: 20110926

REACTIONS (1)
  - RENAL TUBULAR NECROSIS [None]
